FAERS Safety Report 5973221-4 (Version None)
Quarter: 2008Q4

REPORT INFORMATION
  Report Type: 
  Country: None (occurrence: None)
  Receive Date: 20081201
  Receipt Date: 20081120
  Transmission Date: 20090506
  Serious: Yes (Other)
  Sender: FDA-Public Use
  Company Number: US-JNJCH-2008055527

PATIENT
  Age: 14 Month
  Sex: Male

DRUGS (1)
  1. DIPHENHYDRAMINE HCL [Suspect]
     Indication: ACCIDENTAL EXPOSURE
     Dosage: TEXT:BETWEEN 200 AND 500 MG (18-45 MG/KG)
     Route: 048

REACTIONS (7)
  - AGITATION [None]
  - FLUSHING [None]
  - OVERDOSE [None]
  - SINUS TACHYCARDIA [None]
  - TACHYCARDIA [None]
  - VENTRICULAR EXTRASYSTOLES [None]
  - VENTRICULAR TACHYCARDIA [None]
